FAERS Safety Report 6455713-7 (Version None)
Quarter: 2009Q4

REPORT INFORMATION
  Report Type: 
  Country: None (occurrence: None)
  Receive Date: 20091125
  Receipt Date: 20091112
  Transmission Date: 20100525
  Serious: No
  Sender: FDA-Public Use
  Company Number: US-ABBOTT-09P-163-0609065-00

PATIENT
  Sex: Female
  Weight: 59.02 kg

DRUGS (4)
  1. SIMCOR [Suspect]
     Indication: BLOOD CHOLESTEROL INCREASED
     Dosage: 1000MG/20MG
     Dates: start: 20091001
  2. SIMCOR [Suspect]
     Dosage: ^LOWER DOSE^
     Dates: start: 20091001
  3. LEVOTHYROXINE SODIUM [Concomitant]
     Indication: HYPOTHYROIDISM
  4. AMBIEN [Concomitant]
     Indication: INSOMNIA

REACTIONS (3)
  - HOT FLUSH [None]
  - PRURITUS [None]
  - RASH [None]
